FAERS Safety Report 26176060 (Version 1)
Quarter: 2025Q4

REPORT INFORMATION
  Report Type: Spontaneous
  Country: EU (occurrence: EU)
  Receive Date: 20251218
  Receipt Date: 20251218
  Transmission Date: 20260117
  Serious: Yes (Hospitalization)
  Sender: UCB
  Company Number: None

PATIENT
  Weight: 3.85 kg

DRUGS (4)
  1. KEPPRA [Suspect]
     Active Substance: LEVETIRACETAM
     Indication: Epilepsy
  2. CLOBAZAM [Suspect]
     Active Substance: CLOBAZAM
     Indication: Epilepsy
  3. TRILEPTAL [Suspect]
     Active Substance: OXCARBAZEPINE
     Indication: Epilepsy
  4. HUMIRA [Concomitant]
     Active Substance: ADALIMUMAB
     Indication: Rasmussen encephalitis

REACTIONS (4)
  - Irritability [Recovered/Resolved]
  - Behaviour disorder [Recovered/Resolved]
  - Poor feeding infant [Recovered/Resolved]
  - Maternal exposure during pregnancy [Unknown]
